FAERS Safety Report 11093125 (Version 1)
Quarter: 2015Q2

REPORT INFORMATION
  Report Type: Spontaneous
  Country: US (occurrence: US)
  Receive Date: 20150506
  Receipt Date: 20150506
  Transmission Date: 20150821
  Serious: Yes (Death, Hospitalization, Other)
  Sender: FDA-Public Use
  Company Number: US-PFIZER INC-2015148911

PATIENT
  Age: 62 Year
  Sex: Female
  Weight: 40.6 kg

DRUGS (3)
  1. LETROZOLE. [Suspect]
     Active Substance: LETROZOLE
     Indication: BREAST CANCER METASTATIC
     Dosage: 2.5 MG, 1X/DAY
  2. ERGOCALCIFEROL. [Concomitant]
     Active Substance: ERGOCALCIFEROL
     Dosage: 50000 IU, ONCE A WEEK
  3. IBRANCE [Suspect]
     Active Substance: PALBOCICLIB
     Indication: BREAST CANCER METASTATIC
     Dosage: 125 MG, DAILY THREE WEEKS ON ONE WEEK OFF
     Dates: end: 20150408

REACTIONS (8)
  - Pancytopenia [Unknown]
  - Sepsis [Unknown]
  - Renal failure [Unknown]
  - Pneumonia [Unknown]
  - Atrial fibrillation [Unknown]
  - Death [Fatal]
  - Fatigue [Unknown]
  - Abdominal pain [Unknown]

NARRATIVE: CASE EVENT DATE: 2015
